FAERS Safety Report 12682617 (Version 2)
Quarter: 2016Q3

REPORT INFORMATION
  Report Type: Spontaneous
  Country: US (occurrence: US)
  Receive Date: 20160825
  Receipt Date: 20160920
  Transmission Date: 20161109
  Serious: No
  Sender: FDA-Public Use
  Company Number: US-JNJFOC-20160817246

PATIENT
  Age: 49 Year
  Sex: Male
  Weight: 108.86 kg

DRUGS (2)
  1. ZYRTEC [Suspect]
     Active Substance: CETIRIZINE HYDROCHLORIDE
     Indication: URTICARIA
     Dosage: 1-2 TABLETS DAILY
     Route: 048
  2. ZYRTEC [Suspect]
     Active Substance: CETIRIZINE HYDROCHLORIDE
     Indication: MULTIPLE ALLERGIES
     Dosage: 1-2 TABLETS DAILY
     Route: 048

REACTIONS (2)
  - Incorrect dose administered [Unknown]
  - Product use issue [Unknown]
